FAERS Safety Report 6344640-1 (Version None)
Quarter: 2009Q3

REPORT INFORMATION
  Report Type: 
  Country: None (occurrence: None)
  Receive Date: 20090908
  Receipt Date: 20090821
  Transmission Date: 20100115
  Serious: Yes (Other)
  Sender: FDA-Public Use
  Company Number: PHBS2008IT05171

PATIENT
  Age: 11 Year
  Sex: Male
  Weight: 32 kg

DRUGS (1)
  1. IMATINIB MESYLATE [Suspect]
     Indication: CHRONIC MYELOID LEUKAEMIA
     Dosage: 400 MG, DAY
     Dates: start: 20021201

REACTIONS (7)
  - BLOOD FOLLICLE STIMULATING HORMONE INCREASED [None]
  - BONE DENSITY DECREASED [None]
  - C-TELOPEPTIDE [None]
  - GROWTH RETARDATION [None]
  - GYNAECOMASTIA [None]
  - HORMONE LEVEL ABNORMAL [None]
  - URINE CALCIUM INCREASED [None]
